FAERS Safety Report 4951207-6 (Version None)
Quarter: 2006Q1

REPORT INFORMATION
  Report Type: 
  Country: None (occurrence: None)
  Receive Date: 20060314
  Receipt Date: 20060306
  Transmission Date: 20060701
  Serious: Yes (Other)
  Sender: FDA-Public Use
  Company Number: 200512691BWH

PATIENT
  Age: 4 Month
  Sex: Male
  Weight: 6.804 kg

DRUGS (1)
  1. CIPRO XR [Suspect]
     Dosage: TRANSMAMMARY
     Route: 063
     Dates: start: 20050829, end: 20050902

REACTIONS (12)
  - ABNORMAL FAECES [None]
  - DIARRHOEA [None]
  - DIARRHOEA HAEMORRHAGIC [None]
  - DRUG EXPOSURE VIA BREAST MILK [None]
  - FLATULENCE [None]
  - FOOD ALLERGY [None]
  - FOOD INTOLERANCE [None]
  - GASTRIC ULCER [None]
  - GASTROINTESTINAL ULCER [None]
  - GROWTH RETARDATION [None]
  - HAEMORRHAGE [None]
  - OESOPHAGEAL ULCER [None]
